FAERS Safety Report 17563100 (Version 1)
Quarter: 2020Q1

REPORT INFORMATION
  Report Type: Spontaneous
  Country: US (occurrence: US)
  Receive Date: 20200319
  Receipt Date: 20200319
  Transmission Date: 20200409
  Serious: Yes (Hospitalization)
  Sender: FDA-Public Use
  Company Number: US-BAUSCH-BL-2020-008502

PATIENT
  Age: 81 Year
  Sex: Male

DRUGS (2)
  1. XIFAXAN [Suspect]
     Active Substance: RIFAXIMIN
     Indication: PRODUCT USE IN UNAPPROVED INDICATION
     Dosage: EXPIRED DRUG ADMINISTERED
     Route: 048
     Dates: start: 202003, end: 202003
  2. XIFAXAN [Suspect]
     Active Substance: RIFAXIMIN
     Indication: GASTROINTESTINAL INFECTION
     Dosage: AROUND 2015
     Route: 048
     Dates: start: 2015, end: 2020

REACTIONS (8)
  - Therapy cessation [Unknown]
  - Gastrointestinal bacterial infection [Unknown]
  - Product use in unapproved indication [Unknown]
  - Pyrexia [Unknown]
  - Inability to afford medication [Unknown]
  - Insurance issue [Unknown]
  - Tremor [Unknown]
  - Expired product administered [Unknown]

NARRATIVE: CASE EVENT DATE: 2015
